FAERS Safety Report 4421079-7 (Version None)
Quarter: 2004Q3

REPORT INFORMATION
  Report Type: 
  Country: None (occurrence: None)
  Receive Date: 20040803
  Receipt Date: 20040721
  Transmission Date: 20050211
  Serious: Yes (Hospitalization)
  Sender: FDA-Public Use
  Company Number: 2004049504

PATIENT
  Age: 67 Year
  Sex: Male

DRUGS (2)
  1. LIPITOR [Suspect]
     Indication: ARTERIOSCLEROSIS
     Dosage: 80 MG (80 MG 1 IN 1 D) ORAL
     Route: 048
     Dates: start: 20040401, end: 20040624
  2. DIPYRIDAMOLE [Concomitant]

REACTIONS (3)
  - CARPAL TUNNEL SYNDROME [None]
  - HYPOAESTHESIA [None]
  - PARAESTHESIA [None]
